FAERS Safety Report 9450977 (Version 1)
Quarter: 2013Q3

REPORT INFORMATION
  Report Type: Spontaneous
  Country: US (occurrence: US)
  Receive Date: 20130809
  Receipt Date: 20130809
  Transmission Date: 20140515
  Serious: Yes (Other)
  Sender: FDA-Public Use
  Company Number: CHPA2013US012525

PATIENT
  Age: 71 Year
  Sex: Female

DRUGS (1)
  1. EXCEDRIN TENSION HEADACHE [Suspect]
     Indication: TENSION HEADACHE
     Dosage: UNK, PRN
     Route: 048

REACTIONS (5)
  - Local swelling [Unknown]
  - Hypertension [Unknown]
  - Arthritis [Unknown]
  - Anxiety [Unknown]
  - Incorrect dose administered [Unknown]
